FAERS Safety Report 6220911-4 (Version None)
Quarter: 2009Q2

REPORT INFORMATION
  Report Type: 
  Country: None (occurrence: None)
  Receive Date: 20090604
  Receipt Date: 20090522
  Transmission Date: 20091009
  Serious: Yes (Life-Threatening, Hospitalization, Other)
  Sender: FDA-Public Use
  Company Number: DE-WYE-H09467409

PATIENT
  Age: 69 Year
  Sex: Female

DRUGS (10)
  1. PANTOPRAZOLE SODIUM [Suspect]
     Indication: PROPHYLAXIS AGAINST GASTROINTESTINAL ULCER
     Dosage: 20 MG 1X PER 1 DAY ORAL
     Route: 048
     Dates: start: 20080101
  2. HALOPERIDOL [Suspect]
     Indication: RESTLESSNESS
     Dosage: 1 MG 2X PER 1 DAY ORAL
     Route: 048
     Dates: start: 20070101, end: 20090313
  3. RAMIPRIL [Suspect]
     Indication: HYPERTENSION
     Dosage: ORAL
     Route: 048
     Dates: start: 20000101, end: 20090315
  4. THEOPHYLLINE [Suspect]
     Indication: CHRONIC OBSTRUCTIVE PULMONARY DISEASE
     Dosage: 250 MG 2X PER 1 DAY ORAL
     Route: 048
     Dates: start: 20050101
  5. ZOLPIDEM [Suspect]
     Indication: SLEEP DISORDER
     Dosage: 10 MG 1X PER 1 DAY ORAL
     Route: 048
     Dates: start: 20060101, end: 20090313
  6. ANALGIN (METAMIZOLE SODUM) [Concomitant]
  7. CALCIUM CARBONATE (CALCIUM CARBONATE) [Concomitant]
  8. IBUPROFEN [Concomitant]
  9. CLOPIDOGREL [Concomitant]
  10. NEBIVOLOL HCL [Concomitant]

REACTIONS (18)
  - BLOOD CREATININE INCREASED [None]
  - COLD SWEAT [None]
  - DRUG INTERACTION [None]
  - DYSARTHRIA [None]
  - DYSPNOEA [None]
  - ELECTROCARDIOGRAM ST SEGMENT DEPRESSION [None]
  - ELECTROCARDIOGRAM ST SEGMENT ELEVATION [None]
  - FEELING HOT [None]
  - HYPERKINESIA [None]
  - HYPONATRAEMIA [None]
  - NAUSEA [None]
  - PAIN [None]
  - PAIN IN EXTREMITY [None]
  - PALLOR [None]
  - RESTLESSNESS [None]
  - RHABDOMYOLYSIS [None]
  - SINUS TACHYCARDIA [None]
  - VENTRICULAR TACHYCARDIA [None]
